FAERS Safety Report 12770283 (Version 1)
Quarter: 2016Q3

REPORT INFORMATION
  Report Type: Spontaneous
  Country: IL (occurrence: IL)
  Receive Date: 20160922
  Receipt Date: 20160922
  Transmission Date: 20161109
  Serious: Yes (Hospitalization, Other)
  Sender: FDA-Public Use
  Company Number: IL-TEVA-692897ACC

PATIENT
  Sex: Female

DRUGS (1)
  1. TERBINAFINE TEVA [Suspect]
     Active Substance: TERBINAFINE
     Indication: PRODUCT USED FOR UNKNOWN INDICATION

REACTIONS (1)
  - Plasmapheresis [Unknown]

NARRATIVE: CASE EVENT DATE: 2015
